FAERS Safety Report 23838803 (Version 2)
Quarter: 2024Q2

REPORT INFORMATION
  Report Type: Report from Study
  Country: US (occurrence: US)
  Receive Date: 20240509
  Receipt Date: 20240610
  Transmission Date: 20240716
  Serious: Yes (Hospitalization, Other)
  Sender: FDA-Public Use
  Company Number: US-ARGENX-2024-ARGX-US002481

PATIENT

DRUGS (1)
  1. VYVGART HYTRULO [Suspect]
     Active Substance: EFGARTIGIMOD ALFA\HYALURONIDASE-QVFC
     Indication: Myasthenia gravis
     Dosage: UNK
     Route: 058
     Dates: start: 20240221

REACTIONS (6)
  - Nephrolithiasis [Unknown]
  - Myasthenia gravis [Not Recovered/Not Resolved]
  - Walking aid user [Unknown]
  - Fall [Unknown]
  - Inappropriate schedule of product administration [Unknown]
  - Device related infection [Unknown]
